FAERS Safety Report 13967943 (Version 1)
Quarter: 2017Q3

REPORT INFORMATION
  Report Type: Spontaneous
  Country: US (occurrence: US)
  Receive Date: 20170914
  Receipt Date: 20170914
  Transmission Date: 20171128
  Serious: No
  Sender: FDA-Public Use
  Company Number: US-INTERPRAG-PM-OCA2017-00706

PATIENT

DRUGS (9)
  1. CLARITIN [Concomitant]
     Active Substance: LORATADINE
  2. CURCUMIN [Concomitant]
     Active Substance: CURCUMIN
  3. AZASAN [Concomitant]
     Active Substance: AZATHIOPRINE
  4. URSODOL [Concomitant]
  5. CHOLESTYRAMIN [Concomitant]
  6. SPIRONOLACTON [Concomitant]
     Active Substance: SPIRONOLACTONE
     Dosage: UNK
  7. OCALIVA [Suspect]
     Active Substance: OBETICHOLIC ACID
     Indication: BILIARY CIRRHOSIS PRIMARY
     Dosage: 10 MG, QD
     Route: 048
     Dates: start: 20170615
  8. AZATHIOPRINE. [Concomitant]
     Active Substance: AZATHIOPRINE
  9. TRIAMCINOLON                       /00031901/ [Concomitant]

REACTIONS (3)
  - Pruritus [Unknown]
  - Dyspepsia [Unknown]
  - Fatigue [Unknown]

NARRATIVE: CASE EVENT DATE: 20170710
